FAERS Safety Report 23652910 (Version 3)
Quarter: 2024Q2

REPORT INFORMATION
  Report Type: Spontaneous
  Country: US (occurrence: US)
  Receive Date: 20240320
  Receipt Date: 20240422
  Transmission Date: 20240716
  Serious: No
  Sender: FDA-Public Use
  Company Number: US-PFIZER INC-202400055169

PATIENT
  Age: 13 Year
  Sex: Female
  Weight: 31.75 kg

DRUGS (1)
  1. GENOTROPIN [Suspect]
     Active Substance: SOMATROPIN
     Indication: Growth hormone deficiency
     Dosage: TAKES 1.0 ONE DAY AND .8 THE NEXT DAY; TAKES EVERY DAY
     Dates: start: 202402

REACTIONS (5)
  - Wrong technique in device usage process [Unknown]
  - Device breakage [Unknown]
  - Device physical property issue [Unknown]
  - Liquid product physical issue [Unknown]
  - Poor quality device used [Unknown]

NARRATIVE: CASE EVENT DATE: 20240201
